FAERS Safety Report 26157233 (Version 1)
Quarter: 2025Q4

REPORT INFORMATION
  Report Type: Spontaneous
  Country: US (occurrence: None)
  Receive Date: 20251212
  Receipt Date: 20251212
  Transmission Date: 20260117
  Serious: Yes (Hospitalization)
  Sender: FDA-CTU
  Company Number: None

PATIENT
  Age: 55 Year
  Sex: Male

DRUGS (13)
  1. MYCOPHENOLIC ACID [Suspect]
     Active Substance: MYCOPHENOLIC ACID
     Dosage: FREQUENCY : TWICE A DAY;
     Route: 048
  2. TACROLIMUS [Suspect]
     Active Substance: TACROLIMUS
     Dosage: FREQUENCY : TWICE A DAY;
     Route: 048
  3. ELIQUIS [Concomitant]
     Active Substance: APIXABAN
  4. OMEPRAZOLE [Concomitant]
     Active Substance: OMEPRAZOLE
  5. VALACYCLOVIR [Concomitant]
     Active Substance: VALACYCLOVIR HYDROCHLORIDE
  6. CARVEDILOL [Concomitant]
     Active Substance: CARVEDILOL
  7. LOSARTAN [Concomitant]
     Active Substance: LOSARTAN
  8. PREDNISONE [Concomitant]
     Active Substance: PREDNISONE
  9. FIASP [Concomitant]
     Active Substance: INSULIN ASPART
  10. Brinzolamide 1% ophthalmic solution [Concomitant]
  11. Lantanoprost 0.005% ophthalmic solution [Concomitant]
  12. Fluorometholone 0.1% ophthalmic solution [Concomitant]
  13. Timolol 0.5% ophthalmic solution [Concomitant]

REACTIONS (3)
  - Renal transplant [None]
  - Cellulitis [None]
  - Wound [None]

NARRATIVE: CASE EVENT DATE: 20251212
